FAERS Safety Report 9166691 (Version 1)
Quarter: 2013Q1

REPORT INFORMATION
  Report Type: Report from Study
  Country: DE (occurrence: DE)
  Receive Date: 20130315
  Receipt Date: 20130315
  Transmission Date: 20140127
  Serious: Yes (Hospitalization)
  Sender: FDA-Public Use
  Company Number: DE-009507513-1303DEU007158

PATIENT
  Age: 52 Year
  Sex: Female
  Weight: 78 kg

DRUGS (4)
  1. BOCEPREVIR [Suspect]
     Indication: CHRONIC HEPATITIS C
  2. PEGASYS [Suspect]
     Indication: CHRONIC HEPATITIS C
     Dosage: 180 MICROGRAM, 1 IN - 1 WK
     Route: 058
     Dates: start: 20120323
  3. COPEGUS [Suspect]
     Indication: CHRONIC HEPATITIS C
     Dosage: 1200 MG, UNK
     Route: 048
     Dates: start: 20120323, end: 20120820
  4. TELAPREVIR [Suspect]
     Indication: CHRONIC HEPATITIS C

REACTIONS (8)
  - Sepsis [Recovered/Resolved]
  - General physical health deterioration [Recovered/Resolved]
  - Uterine infection [Recovered/Resolved with Sequelae]
  - Type 2 diabetes mellitus [Not Recovered/Not Resolved]
  - Animal bite [Recovered/Resolved]
  - Diarrhoea [Recovered/Resolved]
  - Vomiting [Recovered/Resolved]
  - Uterine leiomyoma [Recovered/Resolved with Sequelae]
